FAERS Safety Report 6923370-9 (Version None)
Quarter: 2010Q3

REPORT INFORMATION
  Report Type: 
  Country: None (occurrence: None)
  Receive Date: 20100813
  Receipt Date: 20100809
  Transmission Date: 20110219
  Serious: Yes (Hospitalization)
  Sender: FDA-Public Use
  Company Number: IT-MERCK-1008ITA00006

PATIENT
  Age: 65 Year
  Sex: Male

DRUGS (2)
  1. JANUMET [Suspect]
     Indication: TYPE 2 DIABETES MELLITUS
     Route: 048
     Dates: start: 20091216, end: 20100101
  2. JANUMET [Suspect]
     Route: 048
     Dates: start: 20100101

REACTIONS (1)
  - ADENOCARCINOMA [None]
